FAERS Safety Report 22141409 (Version 1)
Quarter: 2023Q1

REPORT INFORMATION
  Report Type: Spontaneous
  Country: US (occurrence: US)
  Receive Date: 20230327
  Receipt Date: 20230327
  Transmission Date: 20230417
  Serious: No
  Sender: FDA-Public Use
  Company Number: US-SA-SAC20230323001549

PATIENT
  Sex: Female
  Weight: 79.83 kg

DRUGS (1)
  1. DUPIXENT [Suspect]
     Active Substance: DUPILUMAB
     Indication: Illness
     Dosage: 300 MG , QOW
     Route: 065

REACTIONS (3)
  - Depression [Unknown]
  - Condition aggravated [Unknown]
  - Product dose omission issue [Unknown]
